FAERS Safety Report 13977949 (Version 1)
Quarter: 2017Q3

REPORT INFORMATION
  Report Type: Other
  Country: US (occurrence: US)
  Receive Date: 20170915
  Receipt Date: 20170915
  Transmission Date: 20171128
  Serious: Yes (Death)
  Sender: FDA-Public Use
  Company Number: US-B. BRAUN MEDICAL INC.-2026348

PATIENT
  Age: 39 Year
  Sex: Male

DRUGS (5)
  1. CYCLOBENZAPRINE HYDROCHLORIDE. [Concomitant]
     Active Substance: CYCLOBENZAPRINE HYDROCHLORIDE
  2. SULFAMETHOXAZOLE AND TRIMETHOPRIM [Suspect]
     Active Substance: SULFAMETHOXAZOLE\TRIMETHOPRIM
  3. GABAPENTIN. [Concomitant]
     Active Substance: GABAPENTIN
  4. IBUPROFEN. [Concomitant]
     Active Substance: IBUPROFEN
  5. LIDOCAINE. [Suspect]
     Active Substance: LIDOCAINE
     Indication: NASAL SEPTAL OPERATION
     Route: 050

REACTIONS (2)
  - Thrombosis [None]
  - Embolic stroke [Fatal]
